FAERS Safety Report 7546330-6 (Version None)
Quarter: 2011Q2

REPORT INFORMATION
  Report Type: 
  Country: None (occurrence: None)
  Receive Date: 20110607
  Receipt Date: 20110526
  Transmission Date: 20111010
  Serious: Yes (Death)
  Sender: FDA-Public Use
  Company Number: 2011MA004936

PATIENT
  Age: 57 Year
  Sex: Female

DRUGS (5)
  1. TEGRETOL [Concomitant]
  2. ZOCOR [Concomitant]
  3. DIOVAN [Concomitant]
  4. METFORMIN HYDROCHLORIDE EXTENDED RELEASE [Suspect]
     Indication: DIABETES MELLITUS
     Dosage: 1 G; TID; PO
     Route: 048
  5. ACTOS [Suspect]

REACTIONS (9)
  - LACTIC ACIDOSIS [None]
  - COLD SWEAT [None]
  - VOMITING [None]
  - CARDIAC ARREST [None]
  - METABOLIC ACIDOSIS [None]
  - DIARRHOEA [None]
  - SHOCK [None]
  - MALAISE [None]
  - DIZZINESS [None]
